FAERS Safety Report 5337542-0 (Version None)
Quarter: 2007Q2

REPORT INFORMATION
  Report Type: 
  Country: None (occurrence: None)
  Receive Date: 20070309
  Receipt Date: 20060808
  Transmission Date: 20071010
  Serious: Yes (Other)
  Sender: FDA-Public Use
  Company Number: US200608001732

PATIENT
  Age: 72 Year
  Sex: Female

DRUGS (2)
  1. GEMZAR [Suspect]
     Indication: PANCREATIC CARCINOMA
     Dosage: INTRAVENOUS
     Route: 042
  2. TARCEVA /USA/(ERLOTINIB) [Concomitant]

REACTIONS (1)
  - INTERSTITIAL LUNG DISEASE [None]
